FAERS Safety Report 4640278-2 (Version None)
Quarter: 2005Q2

REPORT INFORMATION
  Report Type: 
  Country: None (occurrence: None)
  Receive Date: 20050420
  Receipt Date: 20050306
  Transmission Date: 20051028
  Serious: Yes (Other)
  Sender: FDA-Public Use
  Company Number: 2005004016

PATIENT
  Age: 44 Year
  Weight: 90 kg

DRUGS (1)
  1. PAROXETINE HCL [Suspect]
     Dosage: 1400MG SINGLE DOSE
     Route: 048

REACTIONS (4)
  - AGITATION [None]
  - DISORIENTATION [None]
  - INTENTIONAL MISUSE [None]
  - SUICIDE ATTEMPT [None]
